FAERS Safety Report 8386237-8 (Version None)
Quarter: 2012Q2

REPORT INFORMATION
  Report Type: 
  Country: None (occurrence: None)
  Receive Date: 20120525
  Receipt Date: 20120521
  Transmission Date: 20120825
  Serious: Yes (Hospitalization, Other)
  Sender: FDA-Public Use
  Company Number: US-PFIZER INC-2011252973

PATIENT
  Sex: Female
  Weight: 100 kg

DRUGS (5)
  1. WARFARIN SODIUM [Concomitant]
     Indication: ANTICOAGULANT THERAPY
     Dosage: 4 MG, DAILY
     Dates: end: 20120301
  2. LYRICA [Suspect]
     Indication: FIBROMYALGIA
     Dosage: 100 MG, 3X/DAY
     Route: 048
     Dates: start: 20080201
  3. CRESTOR [Concomitant]
     Indication: BLOOD CHOLESTEROL INCREASED
     Dosage: 5 MG, DAILY
  4. LYRICA [Suspect]
     Indication: HERPES ZOSTER
  5. SYMBICORT [Concomitant]
     Indication: BLOOD CHOLESTEROL INCREASED
     Dosage: 160/4.5 MCG, 2X/DAY

REACTIONS (11)
  - VOMITING [None]
  - WEIGHT INCREASED [None]
  - PAIN [None]
  - BLOOD PRESSURE INCREASED [None]
  - SUICIDAL IDEATION [None]
  - NAUSEA [None]
  - NIGHT SWEATS [None]
  - MALAISE [None]
  - ROAD TRAFFIC ACCIDENT [None]
  - WITHDRAWAL SYNDROME [None]
  - DEVICE FAILURE [None]
